FAERS Safety Report 22586211 (Version 1)
Quarter: 2023Q2

REPORT INFORMATION
  Report Type: Spontaneous
  Country: US (occurrence: US)
  Receive Date: 20230610
  Receipt Date: 20230610
  Transmission Date: 20230721
  Serious: Yes (Other)
  Sender: FDA-Public Use
  Company Number: US-TEVA-2023-US-2894438

PATIENT
  Age: 74 Year
  Sex: Male

DRUGS (1)
  1. PRAVASTATIN SODIUM [Suspect]
     Active Substance: PRAVASTATIN SODIUM
     Indication: Blood cholesterol increased
     Dosage: 20 MILLIGRAM DAILY; 20 MG
     Route: 048

REACTIONS (3)
  - Lymphoma [Unknown]
  - Dysphagia [Unknown]
  - Product use complaint [Unknown]
